FAERS Safety Report 18109030 (Version 2)
Quarter: 2022Q2

REPORT INFORMATION
  Report Type: Spontaneous
  Country: US (occurrence: US)
  Receive Date: 20200804
  Receipt Date: 20220510
  Transmission Date: 20220721
  Serious: No
  Sender: FDA-Public Use
  Company Number: US-PFIZER INC-2020293141

PATIENT
  Age: 74 Year
  Sex: Female
  Weight: 73.03 kg

DRUGS (3)
  1. IBRANCE [Suspect]
     Active Substance: PALBOCICLIB
     Indication: Breast cancer metastatic
     Dosage: 150 MG
     Dates: start: 20200528
  2. IBRANCE [Suspect]
     Active Substance: PALBOCICLIB
     Dosage: 100 MG, CYCLIC (100MG ONCE A DAY BY MOUTH)
     Route: 048
     Dates: start: 202006
  3. IBRANCE [Suspect]
     Active Substance: PALBOCICLIB
     Dosage: 75 MG, CYCLIC (75MG ONCE A DAY BY MOUTH FOR 21 DAYS THEN OFF FOR 7)
     Route: 048
     Dates: start: 20200716

REACTIONS (1)
  - White blood cell count decreased [Recovering/Resolving]
